FAERS Safety Report 5721421-0 (Version None)
Quarter: 2008Q2

REPORT INFORMATION
  Report Type: 
  Country: None (occurrence: None)
  Receive Date: 20080424
  Receipt Date: 20080416
  Transmission Date: 20081010
  Serious: Yes (Death)
  Sender: FDA-Public Use
  Company Number: 2008JP001067

PATIENT
  Age: 6 Year
  Sex: Female

DRUGS (5)
  1. PROGRAF [Suspect]
     Indication: BONE MARROW TRANSPLANT
     Dates: start: 20060727, end: 20060808
  2. PROGRAF [Suspect]
     Indication: BONE MARROW TRANSPLANT
     Dates: start: 20060809, end: 20060905
  3. METHOTREXATE [Concomitant]
  4. METHYLPREDNISOLONE [Concomitant]
  5. GANCICLOVIR [Concomitant]

REACTIONS (10)
  - ACUTE RESPIRATORY DISTRESS SYNDROME [None]
  - BLOOD LACTATE DEHYDROGENASE INCREASED [None]
  - CYTOMEGALOVIRUS ENTEROCOLITIS [None]
  - DISEASE PROGRESSION [None]
  - MALNUTRITION [None]
  - RENAL IMPAIRMENT [None]
  - SEPSIS [None]
  - THROMBOTIC MICROANGIOPATHY [None]
  - TOXIC ENCEPHALOPATHY [None]
  - VENOOCCLUSIVE LIVER DISEASE [None]
